FAERS Safety Report 4610029-6 (Version None)
Quarter: 2005Q1

REPORT INFORMATION
  Report Type: 
  Country: None (occurrence: None)
  Receive Date: 20050316
  Receipt Date: 20050303
  Transmission Date: 20050727
  Serious: Yes (Other)
  Sender: FDA-Public Use
  Company Number: BR-ROCHE-397663

PATIENT
  Age: 68 Year
  Sex: Male

DRUGS (1)
  1. RIVOTRIL [Suspect]
     Indication: INSOMNIA
     Route: 048
     Dates: start: 20041215, end: 20050301

REACTIONS (1)
  - COLITIS ULCERATIVE [None]
